FAERS Safety Report 17389638 (Version 1)
Quarter: 2020Q1

REPORT INFORMATION
  Report Type: Spontaneous
  Country: US (occurrence: US)
  Receive Date: 20200123
  Receipt Date: 20200123
  Transmission Date: 20200409
  Serious: Yes (Hospitalization)
  Sender: FDA-Public Use
  Company Number: None

PATIENT
  Sex: Female

DRUGS (20)
  1. CLOBETASOL [Concomitant]
     Active Substance: CLOBETASOL
  2. AMARYL [Concomitant]
     Active Substance: GLIMEPIRIDE
  3. GENTAMICIN. [Concomitant]
     Active Substance: GENTAMICIN
  4. ENBREL [Suspect]
     Active Substance: ETANERCEPT
     Indication: PSORIASIS
     Dosage: ?          OTHER DOSE:1 SYR;?
     Route: 058
     Dates: start: 20151120
  5. IRON SUPPLM [Concomitant]
  6. VIT E DL-ALP [Concomitant]
  7. CRESTOR [Concomitant]
     Active Substance: ROSUVASTATIN CALCIUM
  8. GLUCOS/CHOND [Concomitant]
  9. OMEGA-3 KRIL [Concomitant]
  10. SENSIPAR [Concomitant]
     Active Substance: CINACALCET HYDROCHLORIDE
  11. CINNAMON BRK [Concomitant]
  12. RENA-VITE [Concomitant]
     Active Substance: ASCORBIC ACID\BIOTIN\CALCIUM PANTOTHENATE\CYANOCOBALAMIN\FOLIC ACID\NIACINAMIDE\PYRIDOXINE HYDROCHLORIDE\RIBOFLAVIN\THIAMINE MONONITRATE
  13. SYNTHROID [Concomitant]
     Active Substance: LEVOTHYROXINE SODIUM
  14. DEPAKOTE [Concomitant]
     Active Substance: DIVALPROEX SODIUM
  15. PREVIDENT [Concomitant]
     Active Substance: SODIUM FLUORIDE
  16. SEROQUEL [Concomitant]
     Active Substance: QUETIAPINE FUMARATE
  17. TYLENOL [Concomitant]
     Active Substance: ACETAMINOPHEN
  18. ULORIC [Concomitant]
     Active Substance: FEBUXOSTAT
  19. KLONOPIN [Concomitant]
     Active Substance: CLONAZEPAM
  20. NAUZENE [Concomitant]

REACTIONS (1)
  - Influenza [None]
